FAERS Safety Report 7365860-3 (Version None)
Quarter: 2011Q1

REPORT INFORMATION
  Report Type: 
  Country: None (occurrence: None)
  Receive Date: 20110316
  Receipt Date: 20110316
  Transmission Date: 20110831
  Serious: Yes (Hospitalization)
  Sender: FDA-Public Use
  Company Number: None

PATIENT
  Sex: Female
  Weight: 65 kg

DRUGS (2)
  1. RED BLOOD CELLS [Concomitant]
  2. PRADAXA [Suspect]
     Indication: ATRIAL FIBRILLATION
     Dosage: PRADAXA 150 MG TWICE DAILY PO
     Route: 048
     Dates: start: 20110101, end: 20110201

REACTIONS (3)
  - ABDOMINAL PAIN LOWER [None]
  - RECTAL HAEMORRHAGE [None]
  - HAEMATOCHEZIA [None]
